FAERS Safety Report 7465996-2 (Version None)
Quarter: 2011Q2

REPORT INFORMATION
  Report Type: 
  Country: None (occurrence: None)
  Receive Date: 20110509
  Receipt Date: 20100519
  Transmission Date: 20111010
  Serious: No
  Sender: FDA-Public Use
  Company Number: US-ALEXION-A201000588

PATIENT
  Sex: Male

DRUGS (6)
  1. SOLIRIS [Suspect]
     Indication: PAROXYSMAL NOCTURNAL HAEMOGLOBINURIA
     Dosage: 600 MG FOR 4WKS
     Route: 042
     Dates: start: 20090624, end: 20090701
  2. CENTRUM SILVER                     /01292501/ [Concomitant]
     Dosage: UNK
     Route: 048
  3. SOLIRIS [Suspect]
     Dosage: 900 MG Q2WKS, UNK
     Route: 042
     Dates: start: 20090701, end: 20100501
  4. ASPIRIN [Concomitant]
     Dosage: 81 MG, QD
     Route: 048
  5. SOLIRIS [Suspect]
     Dosage: 900 MG Q10-12 DAYS
     Route: 042
     Dates: start: 20100501
  6. PREDNISONE [Concomitant]
     Indication: PAROXYSMAL NOCTURNAL HAEMOGLOBINURIA
     Dosage: 5 MG, QD
     Route: 048

REACTIONS (1)
  - HAEMOLYSIS [None]
